FAERS Safety Report 4399746-3 (Version None)
Quarter: 2004Q3

REPORT INFORMATION
  Report Type: 
  Country: None (occurrence: None)
  Receive Date: 20040714
  Receipt Date: 20040701
  Transmission Date: 20050211
  Serious: Yes (Hospitalization)
  Sender: FDA-Public Use
  Company Number: CA-JNJFOC-20040701255

PATIENT
  Age: 54 Year
  Sex: Male
  Weight: 65.5 kg

DRUGS (2)
  1. REMICADE [Suspect]
     Indication: RHEUMATOID ARTHRITIS
     Dosage: 200 MG, 1 IN 8 WEEK, INTRAVENOUS
     Route: 042
  2. REMICADE [Suspect]

REACTIONS (1)
  - ARTHROSCOPY [None]
